FAERS Safety Report 5079580-1 (Version None)
Quarter: 2006Q3

REPORT INFORMATION
  Report Type: 
  Country: None (occurrence: None)
  Receive Date: 20060811
  Receipt Date: 20060811
  Transmission Date: 20061208
  Serious: Yes (Hospitalization)
  Sender: FDA-Public Use
  Company Number: None

PATIENT
  Age: 51 Year

DRUGS (9)
  1. NAPROXEN [Suspect]
     Indication: INFLAMMATION
     Dates: start: 20060524, end: 20060630
  2. NAPROXEN [Suspect]
     Indication: PAIN
     Dates: start: 20060524, end: 20060630
  3. SULFASALAZINE [Suspect]
     Dates: start: 20051128, end: 20060630
  4. SULFASALAZINE [Concomitant]
  5. PREDNISONE [Concomitant]
  6. CEPHALEXIN [Concomitant]
  7. COMBIVENT [Concomitant]
  8. NAPROXEN -NAPROSYN- TAB [Concomitant]
  9. OMEPRAZOLE -PRILOSEC- CAP [Concomitant]

REACTIONS (10)
  - ASTHENIA [None]
  - BLOOD PRESSURE SYSTOLIC DECREASED [None]
  - DIZZINESS [None]
  - DUODENAL ULCER [None]
  - DYSPNOEA [None]
  - GASTRIC ULCER [None]
  - HAEMATOCRIT DECREASED [None]
  - HAEMOGLOBIN DECREASED [None]
  - HEART RATE INCREASED [None]
  - MELAENA [None]
